FAERS Safety Report 23080826 (Version 1)
Quarter: 2023Q4

REPORT INFORMATION
  Report Type: Spontaneous
  Country: JP (occurrence: JP)
  Receive Date: 20231018
  Receipt Date: 20231018
  Transmission Date: 20240110
  Serious: Yes (Hospitalization, Disabling, Other)
  Sender: FDA-Public Use
  Company Number: JP-ONO-2023JP025514

PATIENT
  Age: 73 Year
  Sex: Male
  Weight: 49 kg

DRUGS (17)
  1. OPDIVO [Suspect]
     Active Substance: NIVOLUMAB
     Indication: Gastric cancer
     Dosage: 360 MG
     Route: 041
     Dates: start: 20221110, end: 202305
  2. OPDIVO [Suspect]
     Active Substance: NIVOLUMAB
     Dosage: 360 MG, Q3W
     Route: 041
     Dates: start: 202306
  3. VONOPRAZAN FUMARATE [Concomitant]
     Active Substance: VONOPRAZAN FUMARATE
     Indication: Product used for unknown indication
     Dosage: UNK
     Route: 048
  4. DAYVIGO [Concomitant]
     Active Substance: LEMBOREXANT
     Indication: Product used for unknown indication
     Dosage: UNK
     Route: 048
  5. ZOLPIDEM TARTRATE [Concomitant]
     Active Substance: ZOLPIDEM TARTRATE
     Indication: Product used for unknown indication
     Dosage: UNK
     Route: 048
  6. DOMPERIDONE [Concomitant]
     Active Substance: DOMPERIDONE
     Indication: Product used for unknown indication
     Dosage: UNK
     Route: 048
  7. TRAZODONE HYDROCHLORIDE [Concomitant]
     Active Substance: TRAZODONE HYDROCHLORIDE
     Indication: Product used for unknown indication
     Dosage: UNK
     Route: 048
  8. BETAHISTINE MESILATE [Concomitant]
     Active Substance: BETAHISTINE MESILATE
     Indication: Product used for unknown indication
     Dosage: UNK
     Route: 048
  9. MAGNESIUM OXIDE [Concomitant]
     Active Substance: MAGNESIUM OXIDE
     Indication: Product used for unknown indication
     Dosage: UNK
     Route: 048
  10. TAMSULOSIN HYDROCHLORIDE [Concomitant]
     Active Substance: TAMSULOSIN HYDROCHLORIDE
     Indication: Product used for unknown indication
     Dosage: TABLET, ORALLY DISINTEGRATING
     Route: 048
  11. FROBEN [FLURBIPROFEN] [Concomitant]
     Indication: Product used for unknown indication
     Dosage: UNK
     Route: 048
  12. ENORAS [Concomitant]
     Indication: Product used for unknown indication
     Dosage: UNKNOWN; ADMINISTRATION ROUTE, ENTERAL
     Dates: start: 202307
  13. ZINC [Concomitant]
     Active Substance: ZINC
     Indication: Product used for unknown indication
     Dosage: UNK
     Route: 048
     Dates: start: 202307
  14. SODIUM FERROUS CITRATE [Concomitant]
     Active Substance: SODIUM FERROUS CITRATE
     Indication: Product used for unknown indication
     Dosage: UNK
     Route: 048
     Dates: start: 202307
  15. METHYLCOBALAMIN [Concomitant]
     Active Substance: METHYLCOBALAMIN
     Indication: Product used for unknown indication
     Dosage: UNK
     Route: 048
     Dates: start: 202307
  16. CAPECITABINE [Concomitant]
     Active Substance: CAPECITABINE
     Indication: Gastric cancer
     Dosage: UNK
     Route: 048
     Dates: start: 20221110, end: 202305
  17. OXALIPLATIN [Concomitant]
     Active Substance: OXALIPLATIN
     Indication: Gastric cancer
     Dosage: UNK
     Route: 041
     Dates: start: 20221110, end: 202305

REACTIONS (4)
  - Uveitis [Not Recovered/Not Resolved]
  - Immune-mediated adverse reaction [Unknown]
  - Cataract [Unknown]
  - Intentional product use issue [Unknown]

NARRATIVE: CASE EVENT DATE: 20230601
